FAERS Safety Report 9904447 (Version 3)
Quarter: 2014Q2

REPORT INFORMATION
  Report Type: Spontaneous
  Country: JP (occurrence: JP)
  Receive Date: 20140218
  Receipt Date: 20140403
  Transmission Date: 20141212
  Serious: Yes (Other)
  Sender: FDA-Public Use
  Company Number: JP-JNJFOC-20131006560

PATIENT
  Age: 61 Year
  Sex: Female
  Weight: 36 kg

DRUGS (19)
  1. SIMPONI [Suspect]
     Indication: RHEUMATOID VASCULITIS
     Route: 058
     Dates: start: 20111117, end: 20111117
  2. SIMPONI [Suspect]
     Indication: RHEUMATOID VASCULITIS
     Route: 058
     Dates: start: 20111213, end: 20111213
  3. SIMPONI [Suspect]
     Indication: RHEUMATOID VASCULITIS
     Route: 058
     Dates: start: 20120112, end: 20120112
  4. SIMPONI [Suspect]
     Indication: RHEUMATOID VASCULITIS
     Route: 058
     Dates: start: 20120207, end: 20120207
  5. SIMPONI [Suspect]
     Indication: RHEUMATOID VASCULITIS
     Route: 058
     Dates: start: 20120308, end: 20120308
  6. SIMPONI [Suspect]
     Indication: RHEUMATOID VASCULITIS
     Route: 058
     Dates: start: 20120403, end: 20120628
  7. SIMPONI [Suspect]
     Indication: RHEUMATOID VASCULITIS
     Route: 058
     Dates: start: 20120724, end: 20130822
  8. SIMPONI [Suspect]
     Indication: RHEUMATOID VASCULITIS
     Route: 058
     Dates: start: 20111018, end: 20111018
  9. RHEUMATREX [Concomitant]
     Indication: RHEUMATOID VASCULITIS
     Route: 048
     Dates: start: 20130811
  10. RHEUMATREX [Concomitant]
     Indication: RHEUMATOID VASCULITIS
     Route: 048
     Dates: start: 19890101
  11. PREDNISOLONE [Concomitant]
     Indication: RHEUMATOID VASCULITIS
     Route: 048
  12. CELECOX [Concomitant]
     Indication: RHEUMATOID VASCULITIS
     Route: 048
  13. PARIET [Concomitant]
     Indication: PROPHYLAXIS
     Route: 048
  14. WARFARIN POTASSIUM [Concomitant]
     Indication: ANTIPHOSPHOLIPID SYNDROME
     Dosage: 1.5MG/2MG, ALTERNATE DAY
     Route: 048
  15. ASPIRIN [Concomitant]
     Indication: ANTIPHOSPHOLIPID SYNDROME
     Route: 048
     Dates: start: 20110303
  16. LEUCOVORIN [Concomitant]
     Indication: FOLATE DEFICIENCY
     Route: 048
     Dates: start: 1989
  17. BONALON [Concomitant]
     Indication: OSTEOPOROSIS
     Route: 048
  18. MAGNESIUM OXIDE [Concomitant]
     Indication: CONSTIPATION
     Route: 048
  19. METHYCOBAL [Concomitant]
     Indication: NEUROPATHY PERIPHERAL
     Route: 048

REACTIONS (1)
  - Systemic lupus erythematosus rash [Recovered/Resolved]
